FAERS Safety Report 4772032-5 (Version None)
Quarter: 2005Q3

REPORT INFORMATION
  Report Type: 
  Country: None (occurrence: None)
  Receive Date: 20050916
  Receipt Date: 20050706
  Transmission Date: 20060218
  Serious: Yes (Death, Other)
  Sender: FDA-Public Use
  Company Number: HK-ABBOTT-05P-075-0305494-00

PATIENT
  Age: 82 Year
  Sex: Female

DRUGS (5)
  1. CLARITHROMYCIN [Suspect]
     Indication: PNEUMONIA
     Route: 048
     Dates: start: 20020507, end: 20020512
  2. COLCHICINE [Interacting]
     Indication: GOUT
     Route: 048
     Dates: start: 20020514, end: 20020518
  3. AMOXICILLIN AND CLAVULANATE POTASSIUM [Concomitant]
     Indication: PNEUMONIA
     Dates: start: 20020507, end: 20020510
  4. CEFTRIAXONE [Concomitant]
     Indication: RECTAL ABSCESS
     Dates: start: 20020511, end: 20020513
  5. VANCOMYCIN [Concomitant]
     Indication: RECTAL ABSCESS
     Route: 042
     Dates: start: 20020512, end: 20020516

REACTIONS (8)
  - DIARRHOEA [None]
  - DRUG INTERACTION [None]
  - DRUG TOXICITY [None]
  - GOUT [None]
  - NAUSEA [None]
  - RECTAL ABSCESS [None]
  - RESPIRATORY FAILURE [None]
  - VOMITING [None]
